FAERS Safety Report 24317330 (Version 1)
Quarter: 2024Q3

REPORT INFORMATION
  Report Type: Spontaneous
  Country: CH (occurrence: CH)
  Receive Date: 20240913
  Receipt Date: 20240913
  Transmission Date: 20241017
  Serious: Yes (Death, Hospitalization)
  Sender: BAYER
  Company Number: None

PATIENT
  Age: 66 Year
  Sex: Male

DRUGS (5)
  1. NEXAVAR [Suspect]
     Active Substance: SORAFENIB
     Indication: Hepatocellular carcinoma
     Dosage: 200 MG, BID
     Route: 048
     Dates: start: 20240715, end: 20240821
  2. CARVEDILOL HELVEPHARM [Concomitant]
     Indication: Hypertension
     Dosage: 18.75 MG(CHRONIC THERAPY DOSAGE 12.5 MG - 0 - 0 - 6.25 MG)
     Route: 048
  3. ENALAPRIL MALEATE [Concomitant]
     Active Substance: ENALAPRIL MALEATE
     Indication: Hypertension
     Dosage: 10 MG, QD(CHRONIC THERAPY)
     Route: 048
  4. XIFAXAN [Concomitant]
     Active Substance: RIFAXIMIN
     Dosage: 550 MG, BID(CHRONIC THERAPY)
     Route: 048
  5. MIRTAZAPINE [Concomitant]
     Active Substance: MIRTAZAPINE
     Dosage: 15 MG, QD(CHRONIC THERAPY)
     Route: 048

REACTIONS (8)
  - Cerebral haemorrhage [Fatal]
  - Depressed level of consciousness [None]
  - Vomiting [None]
  - Anisocoria [None]
  - Mydriasis [None]
  - Breath sounds abnormal [None]
  - Pupillary reflex impaired [None]
  - Off label use [None]

NARRATIVE: CASE EVENT DATE: 20240715
